FAERS Safety Report 23979323 (Version 1)
Quarter: 2024Q2

REPORT INFORMATION
  Report Type: Spontaneous
  Country: FR (occurrence: FR)
  Receive Date: 20240615
  Receipt Date: 20240615
  Transmission Date: 20240715
  Serious: Yes (Other)
  Sender: FDA-Public Use
  Company Number: None

PATIENT
  Age: 55 Year
  Sex: Male
  Weight: 89 kg

DRUGS (7)
  1. ETOPOSIDE [Suspect]
     Active Substance: ETOPOSIDE
     Indication: Acute lymphocytic leukaemia
     Dosage: 3 INJ : 15,16 ET 17.04
     Dates: start: 20240415, end: 20240417
  2. METHOTREXATE [Suspect]
     Active Substance: METHOTREXATE
     Indication: Acute lymphocytic leukaemia
     Dosage: 3 INJECTIONS : 09/04. 12/04. 18/04
     Dates: start: 20240409, end: 20240418
  3. MITOXANTRONE [Suspect]
     Active Substance: MITOXANTRONE HYDROCHLORIDE
     Indication: Acute lymphocytic leukaemia
     Dosage: 8MG/M2/INJECTION. 2 INJECTIONS (15 ET 16/04)
     Dates: start: 20240415, end: 20240416
  4. CYTARABINE [Suspect]
     Active Substance: CYTARABINE
     Indication: Acute lymphocytic leukaemia
     Dosage: 40 MG/INJECTIONS (3 INJECTIONS : 09/04, 12/04, 18/04)
     Dates: start: 20240409, end: 20240418
  5. MEROPENEM [Suspect]
     Active Substance: MEROPENEM
     Indication: Sepsis
     Dates: start: 20240423, end: 20240502
  6. ASPARAGINASE [Suspect]
     Active Substance: ASPARAGINASE
     Indication: Acute lymphocytic leukaemia
     Dosage: 2 INJECTIONS : 19 ET 21/04
     Dates: start: 20240419, end: 20240421
  7. CYTARABINE [Suspect]
     Active Substance: CYTARABINE
     Indication: Acute lymphocytic leukaemia
     Dosage: 2 INJECTIONS 13 ET 14/04
     Dates: start: 20240413, end: 20240414

REACTIONS (3)
  - Hyperbilirubinaemia [Recovering/Resolving]
  - Jaundice [Recovering/Resolving]
  - Cholestatic liver injury [Recovering/Resolving]

NARRATIVE: CASE EVENT DATE: 20240415
